FAERS Safety Report 5610910-5 (Version None)
Quarter: 2008Q1

REPORT INFORMATION
  Report Type: 
  Country: None (occurrence: None)
  Receive Date: 20080201
  Receipt Date: 20080124
  Transmission Date: 20080703
  Serious: Yes (Hospitalization, Other)
  Sender: FDA-Public Use
  Company Number: GB-BRISTOL-MYERS SQUIBB COMPANY-14060792

PATIENT
  Age: 55 Year
  Sex: Female

DRUGS (6)
  1. GLUCOPHAGE XR [Suspect]
     Indication: TYPE 2 DIABETES MELLITUS
     Dosage: STARTED AT 1000MG 1 IN 1 DAY AND THEN INCREASED TO 2000MG 2/D
     Route: 048
     Dates: start: 20071101
  2. DICLOFENAC [Concomitant]
     Indication: OSTEOARTHRITIS
  3. LUMIRACOXIB [Concomitant]
     Indication: OSTEOARTHRITIS
  4. TRAMADOL HCL [Concomitant]
  5. AMITRIPTYLINE HCL [Concomitant]
  6. LEVOTHYROXINE SODIUM [Concomitant]

REACTIONS (7)
  - BLINDNESS [None]
  - COMA [None]
  - LACTIC ACIDOSIS [None]
  - LOWER RESPIRATORY TRACT INFECTION [None]
  - RENAL FAILURE ACUTE [None]
  - SEPSIS [None]
  - VOMITING [None]
